FAERS Safety Report 20815563 (Version 1)
Quarter: 2022Q2

REPORT INFORMATION
  Report Type: Spontaneous
  Country: US (occurrence: US)
  Receive Date: 20220511
  Receipt Date: 20220511
  Transmission Date: 20220720
  Serious: No
  Sender: FDA-Public Use
  Company Number: US-BRISTOL-MYERS SQUIBB COMPANY-2022-033750

PATIENT
  Age: 44 Year
  Sex: Male
  Weight: 215.0 kg

DRUGS (1)
  1. REVLIMID [Suspect]
     Active Substance: LENALIDOMIDE
     Indication: Follicular lymphoma
     Dosage: DAILY FOR 21D ON, 7D OFF
     Route: 048
     Dates: start: 20220304

REACTIONS (2)
  - Respiratory tract infection [Unknown]
  - Off label use [Unknown]
